FAERS Safety Report 12726422 (Version 2)
Quarter: 2016Q4

REPORT INFORMATION
  Report Type: Spontaneous
  Country: BR (occurrence: BR)
  Receive Date: 20160908
  Receipt Date: 20161007
  Transmission Date: 20170207
  Serious: Yes (Other)
  Sender: FDA-Public Use
  Company Number: BR-ALLERGAN-1667996US

PATIENT
  Age: 6 Decade
  Sex: Female

DRUGS (1)
  1. OZURDEX [Suspect]
     Active Substance: DEXAMETHASONE
     Indication: DIABETIC RETINAL OEDEMA
     Dosage: 0.7 MG, SINGLE
     Route: 031
     Dates: start: 20160825, end: 20160825

REACTIONS (5)
  - Eye ulcer [Not Recovered/Not Resolved]
  - Eye inflammation [Unknown]
  - Eye pain [Not Recovered/Not Resolved]
  - Hypopyon [Unknown]
  - Eye infection fungal [Unknown]

NARRATIVE: CASE EVENT DATE: 20160826
